FAERS Safety Report 6011433-4 (Version None)
Quarter: 2008Q4

REPORT INFORMATION
  Report Type: 
  Country: None (occurrence: None)
  Receive Date: 20081218
  Receipt Date: 20040301
  Transmission Date: 20090506
  Serious: Yes (Death)
  Sender: FDA-Public Use
  Company Number: FR-ROCHE-360206

PATIENT
  Age: 58 Year
  Sex: Female
  Weight: 70 kg

DRUGS (1)
  1. XELODA [Suspect]
     Indication: BREAST CANCER
     Dosage: IN MORING AND EVENING
     Route: 048
     Dates: start: 20040125, end: 20040127

REACTIONS (3)
  - DEATH [None]
  - SUDDEN DEATH [None]
  - VOMITING [None]
